FAERS Safety Report 7905816-2 (Version None)
Quarter: 2011Q4

REPORT INFORMATION
  Report Type: 
  Country: None (occurrence: None)
  Receive Date: 20111108
  Receipt Date: 20111101
  Transmission Date: 20120403
  Serious: Yes (Death, Hospitalization)
  Sender: FDA-Public Use
  Company Number: 2010000444

PATIENT
  Age: 53 Year
  Sex: Female

DRUGS (17)
  1. MINOCYCLINE HCL [Concomitant]
  2. ERLOTINIB HYDROCHLORIDE [Suspect]
     Indication: NON-SMALL CELL LUNG CANCER
     Dosage: 50 G, UID/QD, ORAL; ORAL
     Route: 048
     Dates: start: 20110418, end: 20110101
  3. ERLOTINIB HYDROCHLORIDE [Suspect]
     Indication: NON-SMALL CELL LUNG CANCER
     Dosage: 50 G, UID/QD, ORAL; ORAL
     Route: 048
     Dates: start: 20080723
  4. PHENERGAN HCL [Concomitant]
  5. 4 LIFE TRANSFER FACTOR (TRANSFER FACTOR) [Concomitant]
  6. THERA PLUS VITAMINS (MULTIVITAMINS WITH MINERALS) [Concomitant]
  7. ERLOTINIB HYDROCHLORIDE [Suspect]
  8. AVASTIN [Suspect]
  9. ZOFRAN [Concomitant]
  10. LEVAQUIN [Concomitant]
  11. LOVENOX [Concomitant]
  12. LISINOPRIL [Concomitant]
  13. CIPRO [Concomitant]
  14. AVASTIN [Suspect]
     Indication: NON-SMALL CELL LUNG CANCER
     Dosage: 15 MG/KG, Q3W, IV NOS
     Route: 042
     Dates: start: 20080723, end: 20091224
  15. AVASTIN [Suspect]
     Indication: NON-SMALL CELL LUNG CANCER
     Dosage: 15 MG/KG, Q3W, IV NOS
     Route: 042
     Dates: end: 20110425
  16. FENTANYL [Concomitant]
  17. LORTAB [Concomitant]

REACTIONS (9)
  - PERICARDIAL EFFUSION [None]
  - BRONCHITIS VIRAL [None]
  - PLATELET COUNT DECREASED [None]
  - PULMONARY HYPERTENSION [None]
  - INCORRECT DOSE ADMINISTERED [None]
  - RASH [None]
  - TRICUSPID VALVE INCOMPETENCE [None]
  - GASTROOESOPHAGEAL REFLUX DISEASE [None]
  - FUNGAL SEPSIS [None]
